FAERS Safety Report 4601000-9 (Version None)
Quarter: 2005Q1

REPORT INFORMATION
  Report Type: 
  Country: None (occurrence: None)
  Receive Date: 20050307
  Receipt Date: 20050307
  Transmission Date: 20050727
  Serious: Yes (Hospitalization)
  Sender: FDA-Public Use
  Company Number: None

PATIENT
  Age: 47 Year
  Sex: Female
  Weight: 135.6255 kg

DRUGS (7)
  1. TAXOTERE [Suspect]
     Dosage: TAXOTERE 75MG/M2 Q3WK
     Dates: start: 20050121, end: 20050211
  2. CAPECITABINE [Suspect]
     Indication: BREAST CANCER
     Dosage: CAPECITABINE 1000MG/M2 X 14 DAYS
     Dates: start: 20050121, end: 20050216
  3. DEXAMETHASONE [Concomitant]
  4. ONDANSETRON [Concomitant]
  5. EXTRA STRENGTH TYLENOL [Concomitant]
  6. VICODIN [Concomitant]
  7. DIPHENHYDRAMINE HCL [Concomitant]

REACTIONS (8)
  - ASTHMA [None]
  - BRONCHITIS [None]
  - CHEST PAIN [None]
  - NEUTROPHIL COUNT DECREASED [None]
  - PAIN [None]
  - RESPIRATORY RATE INCREASED [None]
  - SINUS TACHYCARDIA [None]
  - WHITE BLOOD CELL COUNT INCREASED [None]
